FAERS Safety Report 17744900 (Version 2)
Quarter: 2020Q2

REPORT INFORMATION
  Report Type: Spontaneous
  Country: US (occurrence: US)
  Receive Date: 20200504
  Receipt Date: 20200521
  Transmission Date: 20200714
  Serious: Yes (Other)
  Sender: FDA-Public Use
  Company Number: US-BAUSCH-BL-2020-012458

PATIENT
  Sex: Female

DRUGS (1)
  1. SOOTHE XP [Suspect]
     Active Substance: LIGHT MINERAL OIL\MINERAL OIL
     Indication: PRODUCT USED FOR UNKNOWN INDICATION
     Route: 065

REACTIONS (9)
  - Product container issue [Unknown]
  - Corneal abrasion [Recovered/Resolved]
  - Eye swelling [Unknown]
  - Eye disorder [Unknown]
  - Unemployment [Unknown]
  - Product quality issue [Unknown]
  - Ocular hyperaemia [Unknown]
  - Insomnia [Unknown]
  - Eye pain [Unknown]

NARRATIVE: CASE EVENT DATE: 202001
